FAERS Safety Report 16761995 (Version 2)
Quarter: 2019Q4

REPORT INFORMATION
  Report Type: Spontaneous
  Country: US (occurrence: US)
  Receive Date: 20190830
  Receipt Date: 20191001
  Transmission Date: 20200122
  Serious: Yes (Other)
  Sender: FDA-Public Use
  Company Number: US-PFIZER INC-2019373297

PATIENT
  Age: 56 Year
  Sex: Male
  Weight: 88.44 kg

DRUGS (1)
  1. SILDENAFIL CITRATE. [Suspect]
     Active Substance: SILDENAFIL CITRATE
     Indication: OESOPHAGEAL SPASM
     Dosage: 50MG TABLET-1/2 TABLET TWICE DAILY
     Route: 048
     Dates: start: 201907, end: 201907

REACTIONS (4)
  - Drug effective for unapproved indication [Unknown]
  - Bradycardia [Not Recovered/Not Resolved]
  - Off label use [Unknown]
  - Headache [Recovering/Resolving]

NARRATIVE: CASE EVENT DATE: 201907
